FAERS Safety Report 8085405-2 (Version None)
Quarter: 2012Q1

REPORT INFORMATION
  Report Type: 
  Country: None (occurrence: None)
  Receive Date: 20120128
  Receipt Date: 20110426
  Transmission Date: 20120608
  Serious: No
  Sender: FDA-Public Use
  Company Number: US-ABBOTT-11P-163-0699654-00

PATIENT
  Sex: Male
  Weight: 80.358 kg

DRUGS (4)
  1. ARAVA [Concomitant]
     Indication: PSORIATIC ARTHROPATHY
     Dates: start: 20100101
  2. IBUPROFEN [Concomitant]
     Indication: PRODUCT USED FOR UNKNOWN INDICATION
     Dosage: 200 MG AS NEEDED
  3. HUMIRA [Suspect]
     Indication: PSORIATIC ARTHROPATHY
     Dosage: INITIAL DOSE
     Dates: start: 20110112
  4. ULTRAM [Concomitant]
     Indication: PAIN
     Dosage: 40 MG A DAY
     Dates: start: 20030101

REACTIONS (4)
  - HEADACHE [None]
  - BACK PAIN [None]
  - NECK PAIN [None]
  - MUSCLE SPASMS [None]
